FAERS Safety Report 17269612 (Version 1)
Quarter: 2020Q1

REPORT INFORMATION
  Report Type: Spontaneous
  Country: US (occurrence: US)
  Receive Date: 20200114
  Receipt Date: 20200114
  Transmission Date: 20200409
  Serious: Yes (Other)
  Sender: FDA-Public Use
  Company Number: US-SA-2020SA009445

PATIENT

DRUGS (1)
  1. FABRAZYME [Suspect]
     Active Substance: AGALSIDASE BETA
     Dosage: 110 MG, Q0W (Q2 WEEKS)
     Route: 041

REACTIONS (3)
  - Condition aggravated [Unknown]
  - Pain [Unknown]
  - Neuropathy peripheral [Unknown]
